FAERS Safety Report 23863524 (Version 3)
Quarter: 2025Q1

REPORT INFORMATION
  Report Type: Report from Study
  Country: GB (occurrence: GB)
  Receive Date: 20240516
  Receipt Date: 20250128
  Transmission Date: 20250408
  Serious: Yes (Other)
  Sender: NOVARTIS
  Company Number: GB-002147023-NVSC2023GB260765

PATIENT
  Sex: Male

DRUGS (1)
  1. MAYZENT [Suspect]
     Active Substance: SIPONIMOD
     Indication: Secondary progressive multiple sclerosis
     Dosage: 2 MG, QD
     Route: 048
     Dates: start: 20231206

REACTIONS (10)
  - Lower respiratory tract infection [Recovered/Resolved]
  - Somnolence [Unknown]
  - Heart rate increased [Unknown]
  - Rash erythematous [Unknown]
  - Viral infection [Recovering/Resolving]
  - Mobility decreased [Recovering/Resolving]
  - Abdominal discomfort [Unknown]
  - Blood pressure increased [Unknown]
  - Tremor [Not Recovered/Not Resolved]
  - Fall [Not Recovered/Not Resolved]

NARRATIVE: CASE EVENT DATE: 20231206
